FAERS Safety Report 10422794 (Version 1)
Quarter: 2014Q3

REPORT INFORMATION
  Report Type: Spontaneous
  Country: US (occurrence: US)
  Receive Date: 20140902
  Receipt Date: 20140902
  Transmission Date: 20150326
  Serious: No
  Sender: FDA-Public Use
  Company Number: US-BIOGENIDEC-2014BI087845

PATIENT
  Sex: Female

DRUGS (1)
  1. AVONEX [Suspect]
     Active Substance: INTERFERON BETA-1A
     Indication: MULTIPLE SCLEROSIS
     Route: 030
     Dates: start: 20130725

REACTIONS (12)
  - Stress [Unknown]
  - Malaise [Unknown]
  - Balance disorder [Not Recovered/Not Resolved]
  - Crying [Unknown]
  - Heart rate increased [Not Recovered/Not Resolved]
  - Chest discomfort [Recovered/Resolved]
  - Nervousness [Not Recovered/Not Resolved]
  - Mobility decreased [Unknown]
  - Muscle twitching [Not Recovered/Not Resolved]
  - Abasia [Unknown]
  - Discomfort [Not Recovered/Not Resolved]
  - Musculoskeletal disorder [Unknown]
